FAERS Safety Report 22615949 (Version 1)
Quarter: 2023Q2

REPORT INFORMATION
  Report Type: Spontaneous
  Country: RU (occurrence: RU)
  Receive Date: 20230619
  Receipt Date: 20230619
  Transmission Date: 20230721
  Serious: Yes (Hospitalization, Other)
  Sender: FDA-Public Use
  Company Number: RU-FreseniusKabi-FK202307598

PATIENT
  Age: 39 Year
  Sex: Female
  Weight: 73 kg

DRUGS (4)
  1. PROPOFOL [Suspect]
     Active Substance: PROPOFOL
     Indication: Sedation
     Dosage: 1% SOLUTION OF PROPOFOL 180 MG (100/80) WAS ADMINISTRATED FRACTIONALLY INTRAVENOUSLY?PROPOFOL KABI 5
     Route: 042
     Dates: start: 20230523, end: 20230523
  2. PROPOFOL [Suspect]
     Active Substance: PROPOFOL
     Indication: General anaesthesia
  3. ATROPINE [Suspect]
     Active Substance: ATROPINE
     Indication: Premedication
     Dosage: INTRAVENOUSLY INJECTION 0.1% SOLUTION OF ATROPINE 0.3 ML
     Route: 042
     Dates: start: 20230523, end: 20230523
  4. ATROPINE [Suspect]
     Active Substance: ATROPINE
     Indication: General anaesthesia

REACTIONS (6)
  - Abdominal pain upper [Recovering/Resolving]
  - Vomiting [Recovering/Resolving]
  - Chills [Unknown]
  - Body temperature increased [Recovering/Resolving]
  - Diarrhoea [Recovering/Resolving]
  - Blood pressure decreased [Unknown]

NARRATIVE: CASE EVENT DATE: 20230523
